FAERS Safety Report 6200815-3 (Version None)
Quarter: 2009Q2

REPORT INFORMATION
  Report Type: 
  Country: None (occurrence: None)
  Receive Date: 20090522
  Receipt Date: 20080916
  Transmission Date: 20091009
  Serious: Yes (Hospitalization)
  Sender: FDA-Public Use
  Company Number: US-ALEXION-A200800225

PATIENT
  Sex: Male
  Weight: 122.45 kg

DRUGS (21)
  1. SOLIRIS [Suspect]
     Indication: PAROXYSMAL NOCTURNAL HAEMOGLOBINURIA
     Dosage: 600 MG, SINGLE
     Route: 042
     Dates: start: 20080319, end: 20080319
  2. SOLIRIS [Suspect]
     Dosage: 600 MG, SINGLE
     Route: 042
     Dates: start: 20080326, end: 20080326
  3. SOLIRIS [Suspect]
     Dosage: 600 MG, SINGLE
     Route: 042
     Dates: start: 20080402, end: 20080402
  4. SOLIRIS [Suspect]
     Dosage: 600 MG, SINGLE
     Route: 042
     Dates: start: 20080409, end: 20080409
  5. SOLIRIS [Suspect]
     Dosage: 900 MG, SINGLE
     Route: 042
     Dates: start: 20080416, end: 20080416
  6. SOLIRIS [Suspect]
     Dosage: 900 MG, SINGLE
     Route: 042
     Dates: start: 20080430, end: 20080430
  7. SOLIRIS [Suspect]
     Dosage: 900 MG, SINGLE
     Route: 042
     Dates: start: 20080514, end: 20080514
  8. SOLIRIS [Suspect]
     Dosage: 900 MG, SINGLE
     Route: 042
     Dates: start: 20080528, end: 20080528
  9. SOLIRIS [Suspect]
     Dosage: 900 MG, SINGLE
     Route: 042
     Dates: start: 20080611, end: 20080611
  10. SOLIRIS [Suspect]
     Dosage: 900 MG, SINGLE
     Route: 042
     Dates: start: 20080625, end: 20080625
  11. SOLIRIS [Suspect]
     Dosage: 900 MG, SINGLE
     Route: 042
     Dates: start: 20080709, end: 20080709
  12. SOLIRIS [Suspect]
     Dosage: 900 MG, SINGLE
     Route: 042
     Dates: start: 20080723, end: 20080723
  13. SOLIRIS [Suspect]
     Dosage: 900 MG, SINGLE
     Route: 042
     Dates: start: 20080806, end: 20080806
  14. SOLIRIS [Suspect]
     Dosage: 900 MG, SINGLE
     Route: 042
     Dates: start: 20080821, end: 20080821
  15. SOLIRIS [Suspect]
     Dosage: 900 MG, SINGLE
     Route: 042
     Dates: start: 20080917, end: 20080917
  16. UNSPECIFIED SUPPLEMENT [Suspect]
     Indication: SUPPLEMENTATION THERAPY
  17. FLUCONAZOLE [Concomitant]
     Indication: WHITE BLOOD CELL COUNT DECREASED
     Dosage: 200 MG, QD
     Route: 048
  18. ACYCLOVIR [Concomitant]
     Indication: WHITE BLOOD CELL COUNT DECREASED
     Dosage: 200 MG, BID
     Route: 048
  19. MOXIFLOXACIN HCL [Concomitant]
     Indication: WHITE BLOOD CELL COUNT DECREASED
     Dosage: 400 MG, QD
     Route: 048
  20. MULTIVITAMIN /00831701/ [Concomitant]
     Indication: ROUTINE HEALTH MAINTENANCE
     Route: 048
  21. GINSENG /00480901/ [Concomitant]
     Indication: ROUTINE HEALTH MAINTENANCE
     Dosage: UNK, UNK
     Route: 048

REACTIONS (3)
  - BLOOD POTASSIUM INCREASED [None]
  - FAECES DISCOLOURED [None]
  - GINGIVAL BLEEDING [None]
